FAERS Safety Report 9199446 (Version 1)
Quarter: 2013Q1

REPORT INFORMATION
  Report Type: Report from Study
  Country: US (occurrence: US)
  Receive Date: 20130329
  Receipt Date: 20130329
  Transmission Date: 20140127
  Serious: Yes (Hospitalization)
  Sender: FDA-Public Use
  Company Number: US-ELI_LILLY_AND_COMPANY-US201303006879

PATIENT
  Age: 68 Year
  Sex: Male
  Weight: 61.9 kg

DRUGS (2)
  1. PEMETREXED [Suspect]
     Indication: MESOTHELIOMA MALIGNANT
     Dosage: 500 MG/M2, EVERY 21 DAYS
     Route: 042
     Dates: start: 20130311
  2. CISPLATIN [Suspect]
     Indication: MESOTHELIOMA MALIGNANT
     Dosage: 75 MG/M2, EVERY 21 DAYS
     Route: 042
     Dates: start: 20130311

REACTIONS (1)
  - Hyponatraemia [Recovering/Resolving]
